FAERS Safety Report 7800773-1 (Version None)
Quarter: 2011Q4

REPORT INFORMATION
  Report Type: 
  Country: None (occurrence: None)
  Receive Date: 20111006
  Receipt Date: 20110929
  Transmission Date: 20120403
  Serious: Yes (Other)
  Sender: FDA-Public Use
  Company Number: US-CEPHALON-2011005163

PATIENT
  Sex: Male

DRUGS (2)
  1. FENTORA [Suspect]
     Indication: PAIN
     Route: 002
     Dates: start: 20110701
  2. FENTANYL [Concomitant]
     Route: 061

REACTIONS (2)
  - DEPRESSION [None]
  - SUICIDAL IDEATION [None]
